FAERS Safety Report 7725495-7 (Version None)
Quarter: 2011Q3

REPORT INFORMATION
  Report Type: 
  Country: None (occurrence: None)
  Receive Date: 20110902
  Receipt Date: 20110621
  Transmission Date: 20111222
  Serious: No
  Sender: FDA-Public Use
  Company Number: PR-BRISTOL-MYERS SQUIBB COMPANY-15850134

PATIENT
  Sex: Female

DRUGS (1)
  1. KOMBIGLYZE XR [Suspect]
     Indication: HYPERGLYCAEMIA
     Route: 048
     Dates: start: 20110101, end: 20110101

REACTIONS (1)
  - BLOOD GLUCOSE INCREASED [None]
